FAERS Safety Report 8268561-2 (Version None)
Quarter: 2012Q2

REPORT INFORMATION
  Report Type: 
  Country: None (occurrence: None)
  Receive Date: 20120409
  Receipt Date: 20120402
  Transmission Date: 20120825
  Serious: Yes (Death)
  Sender: FDA-Public Use
  Company Number: US-CELGENEUS-163-21880-12040174

PATIENT
  Sex: Female

DRUGS (9)
  1. CLONIDINE HCL [Concomitant]
     Route: 065
  2. HUMALOG [Concomitant]
     Dosage: 75/25
     Route: 065
  3. REVLIMID [Suspect]
     Dosage: 25 MILLIGRAM
     Route: 048
     Dates: start: 20120105, end: 20120101
  4. DUONEB [Concomitant]
     Route: 065
  5. COREG [Concomitant]
     Route: 065
  6. LANTUS [Concomitant]
     Route: 065
  7. LASIX [Concomitant]
     Route: 065
  8. CYMBALTA [Concomitant]
     Route: 065
  9. DULCOLAX [Concomitant]
     Route: 065

REACTIONS (1)
  - DEATH [None]
